FAERS Safety Report 9806409 (Version 2)
Quarter: 2014Q1

REPORT INFORMATION
  Report Type: Spontaneous
  Country: US (occurrence: US)
  Receive Date: 20140109
  Receipt Date: 20140214
  Transmission Date: 20141002
  Serious: Yes (Death)
  Sender: FDA-Public Use
  Company Number: US-INCYTE CORPORATION-2014IN000021

PATIENT
  Age: 74 Year
  Sex: Male
  Weight: 113.38 kg

DRUGS (7)
  1. JAKAFI [Suspect]
     Indication: PROSTATE CANCER
     Dosage: 5 MG, BID
     Route: 048
     Dates: start: 20131210, end: 20131222
  2. JAKAFI [Suspect]
     Indication: MYELOFIBROSIS
     Dosage: 10 MG AM AND 5 MG PM
     Route: 065
     Dates: start: 20131223
  3. ALLOPURINOL [Concomitant]
  4. AMLODIPINE BESILATE W/ATORVASTATIN CALCIUM [Concomitant]
  5. LUMIGAN [Concomitant]
  6. OXYBUTYNIN CHLORIDE [Concomitant]
     Dosage: 10 MG
  7. TAMSULOSIN HYDROCHLORIDE [Concomitant]

REACTIONS (3)
  - Death [Fatal]
  - Back pain [Unknown]
  - Hernia [Unknown]
